FAERS Safety Report 9702154 (Version 2)
Quarter: 2013Q4

REPORT INFORMATION
  Report Type: Report from Study
  Country: US (occurrence: US)
  Receive Date: 20131121
  Receipt Date: 20131121
  Transmission Date: 20140711
  Serious: Yes (Hospitalization)
  Sender: FDA-Public Use
  Company Number: US-BAYER-2013-123973

PATIENT
  Age: 56 Year
  Sex: Male
  Weight: 112.47 kg

DRUGS (9)
  1. BETASERON [Suspect]
     Indication: RELAPSING-REMITTING MULTIPLE SCLEROSIS
     Dosage: 8 MIU, QOD
     Route: 058
     Dates: start: 20121129, end: 20131008
  2. BETASERON [Suspect]
     Indication: RELAPSING-REMITTING MULTIPLE SCLEROSIS
     Dosage: 8 MIU, QOD
     Route: 058
     Dates: start: 20131114
  3. AMANTADINE [Concomitant]
     Dosage: 1 DF, BID
  4. AMPYRA [Concomitant]
     Dosage: 1 DF, BID
  5. METHYLPHENIDATE [Concomitant]
     Dosage: 1 DF, QD
  6. NYSTATIN [Concomitant]
     Dosage: 500000 UNIT 1 AS DIRECTED PER PACK
  7. PREDNISONE [Concomitant]
     Dosage: 1 DF, QD
  8. VITAMIN B1 [Concomitant]
     Dosage: 1 DF, QD
  9. XANAX [Concomitant]
     Dosage: 1 DF, TID

REACTIONS (20)
  - Asthenia [Recovered/Resolved]
  - Circulatory collapse [None]
  - Nausea [Recovered/Resolved]
  - Vomiting [Recovered/Resolved]
  - Muscular weakness [None]
  - Gait disturbance [None]
  - Balance disorder [None]
  - Headache [None]
  - Vision blurred [None]
  - Diplopia [None]
  - Hypoaesthesia [None]
  - Dizziness [None]
  - Fatigue [None]
  - Hypersomnia [None]
  - Injection site reaction [Recovered/Resolved]
  - Chills [Not Recovered/Not Resolved]
  - Pyrexia [Not Recovered/Not Resolved]
  - Hyperhidrosis [Not Recovered/Not Resolved]
  - Asthenia [Not Recovered/Not Resolved]
  - Intentional drug misuse [None]
